FAERS Safety Report 9681523 (Version 2)
Quarter: 2014Q1

REPORT INFORMATION
  Report Type: Spontaneous
  Country: US (occurrence: US)
  Receive Date: 20131111
  Receipt Date: 20140106
  Transmission Date: 20141002
  Serious: Yes (Hospitalization)
  Sender: FDA-Public Use
  Company Number: US-CELGENEUS-163-POMAL-13111242

PATIENT
  Age: 68 Year
  Sex: Male

DRUGS (4)
  1. POMALYST [Suspect]
     Indication: PLASMA CELL MYELOMA
     Dosage: 4 MILLIGRAM
     Route: 048
     Dates: start: 20131016, end: 20131030
  2. ONDANSETRON HCL [Concomitant]
     Indication: NAUSEA
     Route: 065
  3. ENALAPRIL MALEATE [Concomitant]
     Indication: HYPERTENSION
     Route: 065
  4. DEXAMETHASONE [Concomitant]
     Indication: PLASMA CELL MYELOMA
     Route: 065
     Dates: start: 20131016

REACTIONS (1)
  - Renal failure [Recovering/Resolving]
